FAERS Safety Report 15633718 (Version 2)
Quarter: 2019Q1

REPORT INFORMATION
  Report Type: Spontaneous
  Country: US (occurrence: US)
  Receive Date: 20181119
  Receipt Date: 20190128
  Transmission Date: 20190417
  Serious: Yes (Other)
  Sender: FDA-Public Use
  Company Number: US-SA-2018SA314391

PATIENT
  Age: 57 Year
  Sex: Female
  Weight: 70 kg

DRUGS (21)
  1. FAMOTIDINE. [Concomitant]
     Active Substance: FAMOTIDINE
  2. VITAMIN D [Concomitant]
     Active Substance: CHOLECALCIFEROL
     Dosage: UNK
     Dates: start: 19960101
  3. ARIMIDEX [Concomitant]
     Active Substance: ANASTROZOLE
     Dosage: UNK
     Dates: start: 20120925, end: 20160321
  4. PALBOCICLIB [Concomitant]
     Active Substance: PALBOCICLIB
     Dosage: UNK UNK, UNK
     Dates: start: 20160321
  5. CYCLOPHOSPHAMIDE. [Concomitant]
     Active Substance: CYCLOPHOSPHAMIDE
  6. TAXOTERE [Suspect]
     Active Substance: DOCETAXEL
     Indication: BREAST CANCER FEMALE
     Dosage: UNK UNK, Q3W, 110 MG, 140 MG
     Route: 042
     Dates: start: 20120703, end: 20120703
  7. PALONOSETRON HCL [Concomitant]
     Active Substance: PALONOSETRON HYDROCHLORIDE
  8. ACETAMINOPHEN. [Concomitant]
     Active Substance: ACETAMINOPHEN
  9. ADRIAMYCIN [Concomitant]
     Active Substance: DOXORUBICIN HYDROCHLORIDE
  10. HYDROCHLOROTHIAZIDE. [Concomitant]
     Active Substance: HYDROCHLOROTHIAZIDE
     Dosage: 1 DF, QD
     Route: 048
     Dates: start: 20090101
  11. ONDANSETRON [Concomitant]
     Active Substance: ONDANSETRON
  12. DEXAMETHASONE. [Concomitant]
     Active Substance: DEXAMETHASONE
  13. LOSARTAN. [Concomitant]
     Active Substance: LOSARTAN
     Dosage: 1 DF, QD
     Route: 048
     Dates: start: 20090101
  14. CALCIUM [Concomitant]
     Active Substance: CALCIUM
     Dosage: UNK
     Dates: start: 19960101
  15. TAXOTERE [Suspect]
     Active Substance: DOCETAXEL
     Dosage: UNK UNK, Q3W, 110 MG, 140 MG
     Route: 042
     Dates: start: 20120905, end: 20120905
  16. HYDROCORTISONE. [Concomitant]
     Active Substance: HYDROCORTISONE
  17. METHYLPREDNISOLONE. [Concomitant]
     Active Substance: METHYLPREDNISOLONE
  18. FULVESTRANT. [Concomitant]
     Active Substance: FULVESTRANT
     Dosage: UNK
     Dates: start: 20160321
  19. LOTENSIN [BENAZEPRIL HYDROCHLORIDE] [Concomitant]
     Route: 048
  20. NEOSAR [Concomitant]
     Active Substance: CYCLOPHOSPHAMIDE
  21. DIPHENHYDRAMINE HYDROCHLORIDE. [Concomitant]
     Active Substance: DIPHENHYDRAMINE HYDROCHLORIDE

REACTIONS (1)
  - Alopecia [Not Recovered/Not Resolved]

NARRATIVE: CASE EVENT DATE: 20130305
